FAERS Safety Report 16105641 (Version 1)
Quarter: 2019Q1

REPORT INFORMATION
  Report Type: Spontaneous
  Country: PT (occurrence: PT)
  Receive Date: 20190322
  Receipt Date: 20190322
  Transmission Date: 20190418
  Serious: Yes (Other)
  Sender: FDA-Public Use
  Company Number: PT-ROCHE-2286090

PATIENT
  Age: 71 Year
  Sex: Male

DRUGS (1)
  1. VALGANCICLOVIR. [Suspect]
     Active Substance: VALGANCICLOVIR
     Indication: PRODUCT USED FOR UNKNOWN INDICATION
     Dosage: INCREASED TO 450 MG BID
     Route: 065

REACTIONS (3)
  - Prescribed underdose [Unknown]
  - Cytomegalovirus infection [Recovered/Resolved]
  - Drug ineffective [Unknown]
